FAERS Safety Report 6071287-7 (Version None)
Quarter: 2009Q1

REPORT INFORMATION
  Report Type: 
  Country: None (occurrence: None)
  Receive Date: 20090205
  Receipt Date: 20090119
  Transmission Date: 20090719
  Serious: Yes (Other)
  Sender: FDA-Public Use
  Company Number: DSU-2009-00130

PATIENT
  Age: 82 Year
  Sex: Female
  Weight: 74.8435 kg

DRUGS (8)
  1. BENICAR HCT [Suspect]
     Indication: HYPERTENSION
     Dosage: 40/12.5 MG (QD), PER ORAL
     Route: 048
     Dates: start: 20081201
  2. PLAVIX [Concomitant]
  3. METOPROLOL TARTRATE [Concomitant]
  4. NEXIUM (ESOMEPRAZOLE MAGNESIUM) (ESOMEPRAZOLE MAGNESIUM) [Concomitant]
  5. PRAVASTATIN [Concomitant]
  6. ECOTRIN (ACETYLSALICYLIC ACID) (ACETYLSALICYLIC ACID) [Concomitant]
  7. MULTI-VITAMINS [Concomitant]
  8. FOLIC ACID (FOLIC ACID) (FOLIC ACID) [Concomitant]

REACTIONS (3)
  - DRUG INEFFECTIVE [None]
  - ORAL DISCOMFORT [None]
  - VISUAL ACUITY REDUCED [None]
